FAERS Safety Report 19878292 (Version 3)
Quarter: 2025Q1

REPORT INFORMATION
  Report Type: Report from Study
  Country: CA (occurrence: CA)
  Receive Date: 20210923
  Receipt Date: 20250113
  Transmission Date: 20250408
  Serious: Yes (Other)
  Sender: TAKEDA
  Company Number: CA-TAKEDA-2021TUS058558

PATIENT
  Sex: Male

DRUGS (2)
  1. VEDOLIZUMAB [Suspect]
     Active Substance: VEDOLIZUMAB
     Indication: Crohn^s disease
  2. VEDOLIZUMAB [Suspect]
     Active Substance: VEDOLIZUMAB

REACTIONS (2)
  - Crohn^s disease [Not Recovered/Not Resolved]
  - Viral infection [Unknown]
